FAERS Safety Report 16594665 (Version 2)
Quarter: 2019Q3

REPORT INFORMATION
  Report Type: Report from Study
  Country: MY (occurrence: MY)
  Receive Date: 20190718
  Receipt Date: 20190814
  Transmission Date: 20191004
  Serious: Yes (Other)
  Sender: FDA-Public Use
  Company Number: PHHY2018MY056438

PATIENT
  Age: 73 Year
  Sex: Female

DRUGS (37)
  1. CEPHALEXIN. [Concomitant]
     Active Substance: CEPHALEXIN
     Indication: PROTEINURIA
     Dosage: 250 OT, UNK
     Route: 048
     Dates: start: 20171205, end: 20171209
  2. LACTULOSE. [Concomitant]
     Active Substance: LACTULOSE
     Indication: CONSTIPATION
     Dosage: 15 OT, UNK
     Route: 048
     Dates: start: 20171122
  3. FELODIPINE. [Concomitant]
     Active Substance: FELODIPINE
     Indication: HYPERTENSION
     Dosage: 10 MG, QD
     Route: 065
     Dates: start: 1997, end: 20180702
  4. CHLORAMPHENICOL [Concomitant]
     Active Substance: CHLORAMPHENICOL
     Indication: LACRIMATION INCREASED
     Dosage: 1 OT, UNK
     Route: 065
     Dates: start: 20180502, end: 20180508
  5. TRAMADOL. [Concomitant]
     Active Substance: TRAMADOL
     Indication: BACK PAIN
     Dosage: 50 OT, UNK
     Route: 048
     Dates: start: 20171107, end: 20171206
  6. AUGMENTIN [Concomitant]
     Active Substance: AMOXICILLIN\CLAVULANATE POTASSIUM
     Indication: COUGH
     Dosage: 625 OT, UNK
     Route: 048
     Dates: start: 20180705, end: 20180712
  7. ENEMA (SODIUM PHOSPHATE, DIBASIC\SODIUM PHOSPHATE, MONOBASIC) [Concomitant]
     Active Substance: SODIUM PHOSPHATE, DIBASIC\SODIUM PHOSPHATE, MONOBASIC
     Indication: CONSTIPATION
     Dosage: 1 OT, UNK
     Route: 054
     Dates: start: 20180706, end: 20180709
  8. CEPHALEXIN. [Concomitant]
     Active Substance: CEPHALEXIN
     Dosage: 250 OT, UNK
     Route: 048
     Dates: start: 20180502, end: 20180508
  9. METOCLOPRAMIDE. [Concomitant]
     Active Substance: METOCLOPRAMIDE
     Indication: NAUSEA
     Dosage: 10 OT, UNK
     Route: 048
     Dates: start: 20171122, end: 20171128
  10. ALPRAZOLAM. [Concomitant]
     Active Substance: ALPRAZOLAM
     Indication: INSOMNIA
     Dosage: 0.5 OT, UNK
     Route: 048
     Dates: start: 20180515, end: 20180521
  11. MORPHINE [Concomitant]
     Active Substance: MORPHINE
     Indication: ANTITUSSIVE THERAPY
  12. DIPHENHYDRAMINE. [Concomitant]
     Active Substance: DIPHENHYDRAMINE
     Dosage: 10 OT, UNK
     Route: 048
     Dates: start: 20180612, end: 20180618
  13. METHYL SALICYLATE [Concomitant]
     Active Substance: METHYL SALICYLATE
     Indication: BACK PAIN
     Dosage: 1 OT, UNK
     Route: 061
     Dates: start: 20180306
  14. MORPHINE HCL [Concomitant]
     Active Substance: MORPHINE HYDROCHLORIDE
     Indication: BACK PAIN
     Dosage: 2.5 OT, UNK
     Route: 048
     Dates: start: 20180528, end: 20180610
  15. DIPHENHYDRAMINE. [Concomitant]
     Active Substance: DIPHENHYDRAMINE
     Indication: COUGH
     Dosage: 15 MG, UNK
     Route: 048
     Dates: start: 20180102, end: 20180115
  16. CEFUROXIME AXETIL. [Concomitant]
     Active Substance: CEFUROXIME AXETIL
     Indication: URINARY TRACT INFECTION
     Dosage: 500 OT, UNK
     Route: 048
     Dates: start: 20180521, end: 20180527
  17. CEFUROXIME SODIUM. [Concomitant]
     Active Substance: CEFUROXIME SODIUM
     Indication: URINARY TRACT INFECTION
     Dosage: 1.5 OT, UNK
     Route: 042
     Dates: start: 20180521, end: 20180521
  18. CHARCOAL ACTIVATED [Concomitant]
     Active Substance: ACTIVATED CHARCOAL
     Indication: DIARRHOEA
     Dosage: 250 OT, UNK
     Route: 048
     Dates: start: 20180528, end: 20180603
  19. BISACODYL. [Concomitant]
     Active Substance: BISACODYL
     Dosage: 10 OT, UNK
     Route: 048
     Dates: start: 20180710, end: 20180713
  20. VOTRIENT [Suspect]
     Active Substance: PAZOPANIB HYDROCHLORIDE
     Dosage: 400 MG, UNK
     Route: 048
     Dates: start: 20180102, end: 20180607
  21. MORPHINE [Concomitant]
     Active Substance: MORPHINE
     Indication: PAIN
     Dosage: 7 OT, UNK
     Route: 048
     Dates: start: 20180706
  22. LACTULOSE. [Concomitant]
     Active Substance: LACTULOSE
     Dosage: 15 OT, UNK
     Route: 048
     Dates: start: 20180612
  23. LOPERAMIDE [Concomitant]
     Active Substance: LOPERAMIDE
     Indication: DIARRHOEA
     Dosage: 2 OT, UNK
     Route: 048
     Dates: start: 20171107
  24. CLONAZEPAM. [Concomitant]
     Active Substance: CLONAZEPAM
     Indication: INSOMNIA
     Dosage: 0.5 OT, UNK
     Route: 048
     Dates: start: 20180403, end: 20180502
  25. CHLORAMPHENICOL [Concomitant]
     Active Substance: CHLORAMPHENICOL
     Indication: EYE PRURITUS
  26. MULTI-VIT [Concomitant]
     Active Substance: VITAMINS
     Indication: LETHARGY
     Dosage: 1 OT, UNK
     Route: 048
     Dates: start: 20180703, end: 20180709
  27. MORPHINE HCL [Concomitant]
     Active Substance: MORPHINE HYDROCHLORIDE
     Indication: MUSCULOSKELETAL CHEST PAIN
     Dosage: 5 OT, UNK
     Route: 048
     Dates: start: 20180612, end: 20180706
  28. METOCLOPRAMIDE. [Concomitant]
     Active Substance: METOCLOPRAMIDE
     Dosage: 10 OT, UNK
     Route: 048
     Dates: start: 20180521, end: 20180527
  29. BROMHEXIN [Concomitant]
     Active Substance: BROMHEXINE
     Indication: RENAL CELL CARCINOMA
     Dosage: 8 MG, UNK
     Route: 048
     Dates: start: 20180216, end: 20180319
  30. ASCORBIC ACID. [Concomitant]
     Active Substance: ASCORBIC ACID
     Indication: HAEMOGLOBIN DECREASED
     Dosage: 100 OT, UNK
     Route: 048
     Dates: start: 20180102, end: 20180131
  31. URAL [Concomitant]
     Indication: URINARY TRACT INFECTION
     Dosage: 1 OT, UNK
     Route: 048
     Dates: start: 20180521, end: 20180523
  32. ORAL REHYDRATION SALT [Concomitant]
     Indication: DIARRHOEA
     Dosage: 1 OT, UNK
     Route: 048
     Dates: start: 20180528, end: 20180603
  33. MORPHINE [Concomitant]
     Active Substance: MORPHINE
     Indication: BACK PAIN
     Dosage: 2.5 OT, UNK
     Route: 048
     Dates: start: 20171122, end: 20180103
  34. CARBAMIDE [Concomitant]
     Active Substance: UREA
     Indication: PROPHYLAXIS
     Dosage: 1 OT, UNK
     Route: 061
     Dates: start: 20171107
  35. VOTRIENT [Suspect]
     Active Substance: PAZOPANIB HYDROCHLORIDE
     Indication: RENAL CELL CARCINOMA
     Dosage: 400 MG, UNK
     Route: 048
     Dates: start: 20171107, end: 20171204
  36. VOTRIENT [Suspect]
     Active Substance: PAZOPANIB HYDROCHLORIDE
     Dosage: 400 OT, UNK
     Route: 048
     Dates: start: 20171205, end: 20180101
  37. BISACODYL. [Concomitant]
     Active Substance: BISACODYL
     Indication: PROPHYLAXIS
     Dosage: 5 OT, UNK
     Route: 048
     Dates: start: 20180706, end: 20180709

REACTIONS (7)
  - Transaminases increased [Recovered/Resolved]
  - Cough [Recovered/Resolved]
  - Hepatotoxicity [Recovered/Resolved]
  - Vomiting [Recovered/Resolved]
  - Urinary tract infection [Recovered/Resolved]
  - Cough [Recovered/Resolved]
  - Constipation [Recovered/Resolved]

NARRATIVE: CASE EVENT DATE: 20171120
